FAERS Safety Report 4475207-8 (Version None)
Quarter: 2004Q4

REPORT INFORMATION
  Report Type: 
  Country: None (occurrence: None)
  Receive Date: 20041013
  Receipt Date: 20041013
  Transmission Date: 20050328
  Serious: Yes (Hospitalization)
  Sender: FDA-Public Use
  Company Number: None

PATIENT
  Age: 76 Year
  Sex: Female

DRUGS (9)
  1. METFORMIN HCL [Suspect]
     Indication: DIABETES MELLITUS
     Dosage: 500 MG BID ORAL
     Route: 048
  2. DILTIAZXEM-CARDIZEM [Concomitant]
  3. HYDROCHLOROTHIAZIDE [Concomitant]
  4. BENEZEPRIL-LOTENSIN [Concomitant]
  5. LIPITOR [Concomitant]
  6. AMITRIPTYLINE-ELAVIL [Concomitant]
  7. COUMADIN [Concomitant]
  8. PANTOPRAZOLE-PROTONIX [Concomitant]
  9. GLIPIZIDE-GLUCOTROL XL [Concomitant]

REACTIONS (5)
  - ABDOMINAL PAIN [None]
  - ALANINE AMINOTRANSFERASE ABNORMAL [None]
  - ASPARTATE AMINOTRANSFERASE ABNORMAL [None]
  - NAUSEA [None]
  - VOMITING [None]
